FAERS Safety Report 16652652 (Version 1)
Quarter: 2019Q3

REPORT INFORMATION
  Report Type: Spontaneous
  Country: US (occurrence: US)
  Receive Date: 20190731
  Receipt Date: 20190731
  Transmission Date: 20191004
  Serious: Yes (Hospitalization)
  Sender: FDA-Public Use
  Company Number: None

PATIENT
  Age: 62 Year
  Sex: Female

DRUGS (5)
  1. CALCIUM TAB 600 MG [Concomitant]
  2. ENBREL [Suspect]
     Active Substance: ETANERCEPT
     Indication: RHEUMATOID ARTHRITIS
     Dosage: ?          OTHER FREQUENCY:ONCE A WEEK;?
     Route: 058
     Dates: start: 20181205
  3. OMEPRAZOLE CAP 40 MG [Concomitant]
  4. METHOTREXATE TAB 2.5 MG [Concomitant]
  5. PROBIOTIC CAP [Concomitant]

REACTIONS (2)
  - Therapy cessation [None]
  - Pneumonia [None]
